FAERS Safety Report 5177550-6 (Version None)
Quarter: 2006Q4

REPORT INFORMATION
  Report Type: 
  Country: None (occurrence: None)
  Receive Date: 20061218
  Receipt Date: 20061030
  Transmission Date: 20070319
  Serious: Yes (Hospitalization)
  Sender: FDA-Public Use
  Company Number: DE-BOEHRINGER INGELHEIM GMBH, GERMANY-2006-DE-05742DE

PATIENT
  Sex: Female

DRUGS (7)
  1. MIRAPEXIN [Suspect]
     Indication: RESTLESS LEGS SYNDROME
     Dates: start: 20060801
  2. MIRAPEXIN [Suspect]
     Route: 048
     Dates: start: 20060801
  3. THYRONAJOD [Concomitant]
     Indication: HYPOTHYROIDISM
     Route: 048
     Dates: start: 20060101
  4. RAMIPRIL [Concomitant]
     Indication: HYPERTENSION
     Route: 048
     Dates: start: 20060301
  5. VALETTE [Concomitant]
     Indication: CONTRACEPTION
     Route: 048
     Dates: start: 20060301
  6. RESTEX [Concomitant]
     Dates: start: 20060401
  7. LEVODOPA [Concomitant]
     Dosage: 100/25

REACTIONS (8)
  - ABDOMINAL DISCOMFORT [None]
  - ABDOMINAL PAIN UPPER [None]
  - DIZZINESS [None]
  - NAUSEA [None]
  - PHARMACEUTICAL PRODUCT COMPLAINT [None]
  - SUDDEN ONSET OF SLEEP [None]
  - VOMITING [None]
  - WEIGHT DECREASED [None]
